FAERS Safety Report 14869675 (Version 15)
Quarter: 2022Q1

REPORT INFORMATION
  Report Type: Report from Study
  Country: CN (occurrence: None)
  Receive Date: 20180509
  Receipt Date: 20220122
  Transmission Date: 20220423
  Serious: Yes (Hospitalization)
  Sender: FDA-Public Use
  Company Number: CN-ROCHE-2114826

PATIENT
  Age: 57 Year
  Sex: Male
  Weight: 62 kg

DRUGS (65)
  1. TOCILIZUMAB [Suspect]
     Active Substance: TOCILIZUMAB
     Indication: Rheumatoid arthritis
     Dosage: MOST RECENT DOSE OF TOCILIZUMAB PRIOR TO AE ONSET ON 13/APR/2018.
     Route: 058
     Dates: start: 20171124
  2. PLACEBO [Suspect]
     Active Substance: UNSPECIFIED INGREDIENT
     Indication: Rheumatoid arthritis
     Dosage: ON 12/APR/2018, MOST RECENT DOSE PRIOR TO AE ONSET.?DATE OF MOST RECENT DOSE PRIOR TO SAE ONSET (ADE
     Route: 048
     Dates: start: 20171126
  3. METHYLPREDNISOLONE [Concomitant]
     Active Substance: METHYLPREDNISOLONE
     Indication: Rheumatoid arthritis
     Route: 048
     Dates: start: 20170810
  4. ALFACALCIDOL [Concomitant]
     Active Substance: ALFACALCIDOL
     Indication: Rheumatoid arthritis
     Dates: start: 20151009
  5. TEPRENONE [Concomitant]
     Active Substance: TEPRENONE
     Indication: Rheumatoid arthritis
     Dates: start: 20151019
  6. DIACEREIN [Concomitant]
     Active Substance: DIACEREIN
     Indication: Osteoarthritis
     Dates: start: 20170810
  7. GLUCOSAMINE HYDROCHLORIDE [Concomitant]
     Active Substance: GLUCOSAMINE HYDROCHLORIDE
     Dates: start: 20170810
  8. BICYCLOL [Concomitant]
     Active Substance: BICYCLOL
     Indication: Rheumatoid arthritis
     Dates: start: 20171221, end: 20180119
  9. BICYCLOL [Concomitant]
     Active Substance: BICYCLOL
     Indication: Hepatic function abnormal
     Dates: start: 20180213
  10. BICYCLOL [Concomitant]
     Active Substance: BICYCLOL
     Route: 048
     Dates: start: 20180515
  11. FOLIC ACID [Concomitant]
     Active Substance: FOLIC ACID
     Indication: Rheumatoid arthritis
     Dates: start: 20171124, end: 201804
  12. AMLODIPINE BESYLATE [Concomitant]
     Active Substance: AMLODIPINE BESYLATE
     Indication: Hypertension
     Dates: start: 20180316
  13. PEMETREXED [Concomitant]
     Active Substance: PEMETREXED
     Dates: start: 20180530
  14. PEMETREXED [Concomitant]
     Active Substance: PEMETREXED
     Dosage: SECOND CYCLE
     Dates: start: 20180623
  15. PEMETREXED [Concomitant]
     Active Substance: PEMETREXED
     Dosage: THIRD CYCLE
     Dates: start: 20180717
  16. CARBOPLATIN [Concomitant]
     Active Substance: CARBOPLATIN
     Dates: start: 20180530
  17. CARBOPLATIN [Concomitant]
     Active Substance: CARBOPLATIN
     Dosage: SECOND CYCLE
     Dates: start: 20180623
  18. CARBOPLATIN [Concomitant]
     Active Substance: CARBOPLATIN
     Dosage: THIRD CYCLE
     Dates: start: 20180717
  19. ILAPRAZOLE [Concomitant]
     Active Substance: ILAPRAZOLE
     Dates: end: 20180424
  20. ILAPRAZOLE [Concomitant]
     Active Substance: ILAPRAZOLE
     Route: 048
     Dates: start: 20180425, end: 20180507
  21. ILAPRAZOLE [Concomitant]
     Active Substance: ILAPRAZOLE
     Route: 048
     Dates: start: 20180514, end: 20180514
  22. ILAPRAZOLE [Concomitant]
     Active Substance: ILAPRAZOLE
     Route: 048
     Dates: start: 20180424, end: 20180424
  23. ILAPRAZOLE [Concomitant]
     Active Substance: ILAPRAZOLE
     Route: 048
     Dates: start: 20180515
  24. CEFOPERAZONE SODIUM [Concomitant]
     Active Substance: CEFOPERAZONE SODIUM
     Route: 042
     Dates: start: 20180506, end: 20180506
  25. CEFOPERAZONE SODIUM [Concomitant]
     Active Substance: CEFOPERAZONE SODIUM
     Route: 042
     Dates: start: 20180507, end: 20180507
  26. CEFOPERAZONE SODIUM [Concomitant]
     Active Substance: CEFOPERAZONE SODIUM
     Route: 042
     Dates: start: 20180508, end: 20180513
  27. TAZOBACTAM SODIUM [Concomitant]
     Active Substance: TAZOBACTAM SODIUM
     Route: 042
     Dates: start: 20180506, end: 20180506
  28. TAZOBACTAM SODIUM [Concomitant]
     Active Substance: TAZOBACTAM SODIUM
     Route: 042
     Dates: start: 20180507, end: 20180507
  29. TAZOBACTAM SODIUM [Concomitant]
     Active Substance: TAZOBACTAM SODIUM
     Route: 042
     Dates: start: 20180508, end: 20180513
  30. ATROPINE [Concomitant]
     Active Substance: ATROPINE
     Route: 042
     Dates: start: 20180423, end: 20180423
  31. LIDOCAINE HYDROCHLORIDE [Concomitant]
     Active Substance: LIDOCAINE HYDROCHLORIDE
     Dates: start: 20180426, end: 20180426
  32. LANSOPRAZOLE [Concomitant]
     Active Substance: LANSOPRAZOLE
     Route: 042
     Dates: start: 20180507, end: 20180507
  33. LANSOPRAZOLE [Concomitant]
     Active Substance: LANSOPRAZOLE
     Route: 042
     Dates: start: 20180508, end: 20180514
  34. LANSOPRAZOLE [Concomitant]
     Active Substance: LANSOPRAZOLE
     Dates: start: 20190214
  35. CREATINE [Concomitant]
     Active Substance: CREATINE
     Route: 042
     Dates: start: 20180507, end: 20180507
  36. CREATINE [Concomitant]
     Active Substance: CREATINE
     Route: 042
     Dates: start: 20180508, end: 20180514
  37. INSULIN NOS [Concomitant]
     Active Substance: INSULIN NOS
     Dosage: MEDICATION DOSE: 4 OTHER
     Route: 042
     Dates: start: 20180507, end: 20180507
  38. INSULIN NOS [Concomitant]
     Active Substance: INSULIN NOS
     Dosage: MEDICATION DOSE: 4 OTHER
     Route: 042
     Dates: start: 20180508, end: 20180514
  39. UNSPECIFIED INGREDIENT [Concomitant]
     Active Substance: UNSPECIFIED INGREDIENT
     Route: 042
     Dates: start: 20180507, end: 20180507
  40. UNSPECIFIED INGREDIENT [Concomitant]
     Active Substance: UNSPECIFIED INGREDIENT
     Route: 042
     Dates: start: 20180508, end: 20180514
  41. GLUTAMINE [Concomitant]
     Active Substance: GLUTAMINE
     Route: 042
     Dates: start: 20180507, end: 20180507
  42. PARECOXIB SODIUM [Concomitant]
     Active Substance: PARECOXIB SODIUM
     Route: 030
     Dates: start: 20180507, end: 20180507
  43. PARECOXIB SODIUM [Concomitant]
     Active Substance: PARECOXIB SODIUM
     Route: 030
     Dates: start: 20180508, end: 20180510
  44. AMINOCAPROIC ACID [Concomitant]
     Active Substance: AMINOCAPROIC ACID
     Route: 042
     Dates: start: 20180507, end: 20180507
  45. ALBUMIN HUMAN [Concomitant]
     Active Substance: ALBUMIN HUMAN
     Route: 042
     Dates: start: 20180509, end: 20180509
  46. ALBUMIN HUMAN [Concomitant]
     Active Substance: ALBUMIN HUMAN
     Route: 042
     Dates: start: 20180511, end: 20180511
  47. ALBUMIN HUMAN [Concomitant]
     Active Substance: ALBUMIN HUMAN
     Route: 042
     Dates: start: 20180512, end: 20180512
  48. FUROSEMIDE [Concomitant]
     Active Substance: FUROSEMIDE
     Route: 042
     Dates: start: 20180509, end: 20180509
  49. FUROSEMIDE [Concomitant]
     Active Substance: FUROSEMIDE
     Route: 042
     Dates: start: 20180511, end: 20180511
  50. FUROSEMIDE [Concomitant]
     Active Substance: FUROSEMIDE
     Route: 042
     Dates: start: 20180512, end: 20180512
  51. AMBROXOL HYDROCHLORIDE [Concomitant]
     Active Substance: AMBROXOL HYDROCHLORIDE
     Route: 055
     Dates: start: 20180508, end: 20180511
  52. AMBROXOL HYDROCHLORIDE [Concomitant]
     Active Substance: AMBROXOL HYDROCHLORIDE
     Route: 042
     Dates: start: 20180508, end: 20180511
  53. BUDESONIDE [Concomitant]
     Active Substance: BUDESONIDE
     Route: 055
     Dates: start: 20180508, end: 20180511
  54. SODIUM [Concomitant]
     Active Substance: SODIUM
     Route: 042
     Dates: start: 20180507, end: 20180507
  55. SODIUM [Concomitant]
     Active Substance: SODIUM
     Route: 042
     Dates: start: 20180508, end: 20180508
  56. POTASSIUM [Concomitant]
     Active Substance: POTASSIUM
     Route: 042
     Dates: start: 20180507, end: 20180507
  57. POTASSIUM [Concomitant]
     Active Substance: POTASSIUM
     Route: 042
     Dates: start: 20180508, end: 20180508
  58. MAGNESIUM [Concomitant]
     Active Substance: MAGNESIUM
     Route: 042
     Dates: start: 20180507, end: 20180507
  59. MAGNESIUM [Concomitant]
     Active Substance: MAGNESIUM
     Route: 042
     Dates: start: 20180508, end: 20180508
  60. CALCIUM [Concomitant]
     Active Substance: CALCIUM
     Route: 042
     Dates: start: 20180507, end: 20180507
  61. CALCIUM [Concomitant]
     Active Substance: CALCIUM
     Route: 042
     Dates: start: 20180508, end: 20180508
  62. DEXTROSE [Concomitant]
     Active Substance: DEXTROSE
     Route: 042
     Dates: start: 20180507, end: 20180507
  63. DEXTROSE [Concomitant]
     Active Substance: DEXTROSE
     Route: 042
     Dates: start: 20180508, end: 20180508
  64. ALANYL GLUTAMINE [Concomitant]
     Active Substance: ALANYL GLUTAMINE
     Route: 042
     Dates: start: 20180508, end: 20180514
  65. CALCITRIOL [Concomitant]
     Active Substance: CALCITRIOL
     Dates: start: 20170215

REACTIONS (1)
  - Lung adenocarcinoma [Not Recovered/Not Resolved]

NARRATIVE: CASE EVENT DATE: 20180401
